FAERS Safety Report 14203062 (Version 1)
Quarter: 2017Q4

REPORT INFORMATION
  Report Type: Report from Study
  Country: DE (occurrence: DE)
  Receive Date: 20171120
  Receipt Date: 20171120
  Transmission Date: 20180321
  Serious: Yes (Other)
  Sender: FDA-Public Use
  Company Number: DE-ROCHE-1944870

PATIENT

DRUGS (8)
  1. TACROLIMUS. [Suspect]
     Active Substance: TACROLIMUS
     Indication: PROPHYLAXIS AGAINST TRANSPLANT REJECTION
     Dosage: DOSE: 0.03 TO 0.1 MG/KG/DAY
     Route: 048
  2. MYCOPHENOLATE MOFETIL. [Suspect]
     Active Substance: MYCOPHENOLATE MOFETIL
     Indication: PROPHYLAXIS AGAINST TRANSPLANT REJECTION
     Dosage: AS A SHORT-TERM INFUSION
     Route: 042
  3. METHYLPREDNISOLONE. [Concomitant]
     Active Substance: METHYLPREDNISOLONE
     Indication: PROPHYLAXIS AGAINST TRANSPLANT REJECTION
     Dosage: FOLLOWED BY 3125-MG DOSES WITHIN THE INITIAL 24-HR PERIOD AFTER TRANSPLANTATION
     Route: 042
  4. MYCOPHENOLATE MOFETIL. [Suspect]
     Active Substance: MYCOPHENOLATE MOFETIL
     Indication: PROPHYLAXIS AGAINST TRANSPLANT REJECTION
     Route: 048
  5. CYCLOSPORINE. [Suspect]
     Active Substance: CYCLOSPORINE
     Indication: PROPHYLAXIS AGAINST TRANSPLANT REJECTION
     Dosage: DOSE: 3 TO 8MG/KG/DAY
     Route: 048
  6. CYCLOSPORINE. [Suspect]
     Active Substance: CYCLOSPORINE
     Dosage: DOSE: 0.03 TO 0.1 MG/KG/DAY.
     Route: 042
  7. TACROLIMUS. [Suspect]
     Active Substance: TACROLIMUS
     Dosage: DOSE: 0.01 TO 0.02 MG/KG/DAY
     Route: 042
  8. PREDNISOLONE. [Concomitant]
     Active Substance: PREDNISOLONE
     Indication: PROPHYLAXIS AGAINST TRANSPLANT REJECTION
     Dosage: THE DOSE WAS TAPERED FROM 1.0 MG/KG/DAY TO 0.1 MG/KG/DAY OVER A PERIOD OF 4 WEEKS AND FINALLY COMPLE
     Route: 042

REACTIONS (9)
  - Generalised tonic-clonic seizure [Unknown]
  - Depression [Unknown]
  - Tremor [Unknown]
  - Paraesthesia [Unknown]
  - Insomnia [Unknown]
  - Gingival hypertrophy [Unknown]
  - Neuralgia [Unknown]
  - Neuropathy peripheral [Unknown]
  - Restless legs syndrome [Unknown]
